FAERS Safety Report 5897872-0 (Version None)
Quarter: 2008Q3

REPORT INFORMATION
  Report Type: 
  Country: None (occurrence: None)
  Receive Date: 20080925
  Receipt Date: 20080925
  Transmission Date: 20090109
  Serious: Yes (Hospitalization)
  Sender: FDA-Public Use
  Company Number: A0749188A

PATIENT
  Sex: Female

DRUGS (2)
  1. ALLI [Suspect]
     Route: 048
     Dates: start: 20080801
  2. LOVENOX [Concomitant]

REACTIONS (2)
  - ARTHRALGIA [None]
  - EXPIRED DRUG ADMINISTERED [None]
